FAERS Safety Report 20966235 (Version 1)
Quarter: 2022Q2

REPORT INFORMATION
  Report Type: Spontaneous
  Country: US (occurrence: None)
  Receive Date: 20220614
  Receipt Date: 20220614
  Transmission Date: 20220720
  Serious: Yes (Other)
  Sender: FDA-Public Use
  Company Number: None

PATIENT
  Age: 48 Year
  Sex: Male
  Weight: 117 kg

DRUGS (1)
  1. PAPAVERINE [Suspect]
     Active Substance: PAPAVERINE
     Indication: Cerebral vasoconstriction
     Dosage: FREQUENCY : ONCE;?

REACTIONS (4)
  - Deafness bilateral [None]
  - Bispectral index decreased [None]
  - Product quality issue [None]
  - Product quality issue [None]

NARRATIVE: CASE EVENT DATE: 20220614
